FAERS Safety Report 9527520 (Version 1)
Quarter: 2013Q1

REPORT INFORMATION
  Report Type: Spontaneous
  Country: US (occurrence: None)
  Receive Date: 20130305
  Receipt Date: 20130305
  Transmission Date: 20140127
  Serious: Yes (Other)
  Sender: FDA-Public Use
  Company Number: 2012000271

PATIENT
  Sex: Female
  Weight: 49.9 kg

DRUGS (1)
  1. NAPRELAN [Suspect]
     Indication: PAIN
     Dosage: 500 MG
     Dates: start: 20121005, end: 20121008

REACTIONS (1)
  - Gastrointestinal haemorrhage [None]
